FAERS Safety Report 9305086 (Version 1)
Quarter: 2013Q2

REPORT INFORMATION
  Report Type: Spontaneous
  Country: US (occurrence: US)
  Receive Date: 20130523
  Receipt Date: 20130523
  Transmission Date: 20140414
  Serious: Yes (Death, Hospitalization, Other)
  Sender: FDA-Public Use
  Company Number: US-JNJFOC-20130510804

PATIENT
  Age: 17 Year
  Sex: Female
  Weight: 50 kg

DRUGS (2)
  1. ACETAMINOPHEN [Suspect]
     Route: 065
  2. ACETAMINOPHEN [Suspect]
     Indication: PRODUCT USED FOR UNKNOWN INDICATION
     Route: 065

REACTIONS (11)
  - Brain death [Fatal]
  - Overdose [Unknown]
  - Acute hepatic failure [Unknown]
  - Encephalopathy [Unknown]
  - Coagulopathy [Unknown]
  - Intracranial pressure increased [Unknown]
  - Renal failure [Unknown]
  - Liver transplant [None]
  - Epstein-Barr virus test positive [None]
  - Cytomegalovirus test positive [None]
  - Hepatitis B core antibody positive [None]
